FAERS Safety Report 6253839-4 (Version None)
Quarter: 2009Q2

REPORT INFORMATION
  Report Type: 
  Country: None (occurrence: None)
  Receive Date: 20090630
  Receipt Date: 20090630
  Transmission Date: 20091009
  Serious: No
  Sender: FDA-Public Use
  Company Number: None

PATIENT
  Sex: Male

DRUGS (1)
  1. TASIGNA [Suspect]
     Indication: NEOPLASM
     Dosage: 2 CAPS BID PO
     Route: 048
     Dates: start: 20081219

REACTIONS (3)
  - CONTUSION [None]
  - SKIN EXFOLIATION [None]
  - THROMBOCYTOPENIA [None]
